FAERS Safety Report 7750454-8 (Version None)
Quarter: 2011Q3

REPORT INFORMATION
  Report Type: 
  Country: None (occurrence: None)
  Receive Date: 20110912
  Receipt Date: 20110828
  Transmission Date: 20111222
  Serious: Yes (Life-Threatening, Hospitalization, Disabling)
  Sender: FDA-Public Use
  Company Number: DKLU1061284

PATIENT
  Age: 15 Year
  Sex: Female
  Weight: 42 kg

DRUGS (6)
  1. DORMICUM (NITRAZEPAM) (INJECTION) [Suspect]
     Indication: VOMITING
     Dosage: 150 MG MILLIGRAM(S), INTRAVENOUS, 100 MG MILLIGRAM(S), INTRAVENOUS
     Route: 042
     Dates: start: 20091120, end: 20091130
  2. DORMICUM (NITRAZEPAM) (INJECTION) [Suspect]
     Indication: VOMITING
     Dosage: 150 MG MILLIGRAM(S), INTRAVENOUS, 100 MG MILLIGRAM(S), INTRAVENOUS
     Route: 042
     Dates: start: 20091109, end: 20091119
  3. IFOSFAMIDE [Suspect]
     Indication: RHABDOMYOSARCOMA
     Dosage: 2400 MG MILLIGRAM(S), 1 IN 1 D, INTRAVENOUS
     Route: 042
     Dates: start: 20091109, end: 20091113
  4. ETOPOSIDE [Suspect]
     Indication: RHABDOMYOSARCOMA
     Dosage: 150 MG MILLIGRAM(S), 1 IN 1 D, INTRAVENOUS
     Route: 042
     Dates: start: 20091109, end: 20091113
  5. COSMEGEN (DACTINOMYCIN) (INJECTION) [Suspect]
     Indication: RHABDOMYOSARCOMA
     Dosage: 0.63 MG MILLIGRAM(S), 1 IN 1 D, INTRAVENOUS
     Route: 042
     Dates: start: 20091109, end: 20091113
  6. ONCOVIN [Suspect]
     Indication: RHABDOMYOSARCOMA
     Dosage: 2 MG MILLIGRAM(S), 1 IN 1 WK, INTRAVENOUS
     Route: 042
     Dates: start: 20091109, end: 20091119

REACTIONS (12)
  - BACTERIAL INFECTION [None]
  - MULTI-ORGAN FAILURE [None]
  - QUALITY OF LIFE DECREASED [None]
  - CONTINUOUS HAEMODIAFILTRATION [None]
  - RENAL FAILURE [None]
  - DEPRESSED LEVEL OF CONSCIOUSNESS [None]
  - RESPIRATORY FAILURE [None]
  - ACTIVITIES OF DAILY LIVING IMPAIRED [None]
  - BONE MARROW FAILURE [None]
  - DISSEMINATED INTRAVASCULAR COAGULATION [None]
  - ANURIA [None]
  - RHABDOMYOLYSIS [None]
